FAERS Safety Report 4458555-7 (Version None)
Quarter: 2004Q3

REPORT INFORMATION
  Report Type: 
  Country: None (occurrence: None)
  Receive Date: 20040917
  Receipt Date: 20031104
  Transmission Date: 20050211
  Serious: Yes (Other)
  Sender: FDA-Public Use
  Company Number: US-JNJFOC-20031101130

PATIENT
  Age: 64 Year
  Sex: Female
  Weight: 117.9352 kg

DRUGS (8)
  1. TOPAMAX [Suspect]
     Indication: BIPOLAR DISORDER
     Dosage: 60 MG, IN 1 DAY, ORAL
     Route: 048
     Dates: start: 20010901, end: 20021201
  2. ACTOS [Concomitant]
  3. METFORMIN HCL [Concomitant]
  4. ZOCOR [Concomitant]
  5. TAGAMET [Concomitant]
  6. QUIPRO (CIPROFLOXACIN HYDROCHLORIDE) [Concomitant]
  7. SPIRONOLACTONE [Concomitant]
  8. ^BLOOD ^PRESSURE^ (ANTIHYPERTENSIVES) [Concomitant]

REACTIONS (2)
  - MANIA [None]
  - PSYCHOTIC DISORDER [None]
